FAERS Safety Report 11291469 (Version 1)
Quarter: 2015Q3

REPORT INFORMATION
  Report Type: Spontaneous
  Country: US (occurrence: None)
  Receive Date: 20150721
  Receipt Date: 20150721
  Transmission Date: 20151125
  Serious: No
  Sender: FDA-Public Use
  Company Number: None

PATIENT
  Age: 82 Year
  Sex: Male
  Weight: 99.79 kg

DRUGS (10)
  1. ASPIRIN. [Concomitant]
     Active Substance: ASPIRIN
  2. AREDS II FORMULA [Concomitant]
  3. TOVIAZ [Suspect]
     Active Substance: FESOTERODINE FUMARATE
     Indication: POLLAKIURIA
     Dosage: 1 PILL/ 24HRS
     Route: 048
     Dates: start: 20150601
  4. FLOMAX [Concomitant]
     Active Substance: TAMSULOSIN HYDROCHLORIDE
  5. VITAMIN C [Concomitant]
     Active Substance: ASCORBIC ACID
  6. D [Concomitant]
  7. FISH OIL [Concomitant]
     Active Substance: FISH OIL
  8. STOOL SOFTENER [Concomitant]
     Active Substance: DOCUSATE CALCIUM
  9. LOSARTAN. [Concomitant]
     Active Substance: LOSARTAN
  10. PAP MACHINE [Concomitant]

REACTIONS (1)
  - Dysphonia [None]

NARRATIVE: CASE EVENT DATE: 20150601
